FAERS Safety Report 17146031 (Version 1)
Quarter: 2019Q4

REPORT INFORMATION
  Report Type: Spontaneous
  Country: ES (occurrence: ES)
  Receive Date: 20191212
  Receipt Date: 20191212
  Transmission Date: 20200122
  Serious: No
  Sender: FDA-Public Use
  Company Number: ES-ROCHE-2478062

PATIENT
  Age: 53 Year
  Sex: Male

DRUGS (7)
  1. OCREVUS [Suspect]
     Active Substance: OCRELIZUMAB
     Indication: PRIMARY PROGRESSIVE MULTIPLE SCLEROSIS
     Route: 042
     Dates: start: 20191107
  2. OXCARBAZEPINE. [Concomitant]
     Active Substance: OXCARBAZEPINE
     Route: 065
  3. SATIVEX [Concomitant]
     Active Substance: NABIXIMOLS
     Dosage: 2 PULSES ON AWAKENING, 2 AT MID-DAY AND 2 AT BEDTIME
     Route: 065
  4. SIMVASTATIN. [Concomitant]
     Active Substance: SIMVASTATIN
     Route: 065
  5. LIORESAL [Concomitant]
     Active Substance: BACLOFEN
     Dosage: 2 TABLETS AT BREAKFAST-2 TABLETS AT LUNCH-1 TABLET AT DINNER
     Route: 065
  6. FAMPYRA [Concomitant]
     Active Substance: DALFAMPRIDINE
     Dosage: 1 TABLET AT BREAKFAST-0-1 TABLET AT DINNER
     Route: 065
  7. BOTULINUM TOXIN [Concomitant]
     Active Substance: BOTULINUM TOXIN NOS
     Indication: MUSCLE SPASTICITY

REACTIONS (2)
  - Urticaria [Recovered/Resolved]
  - Oral candidiasis [Recovered/Resolved]

NARRATIVE: CASE EVENT DATE: 20191107
